FAERS Safety Report 23938237 (Version 1)
Quarter: 2024Q2

REPORT INFORMATION
  Report Type: Spontaneous
  Country: JP (occurrence: JP)
  Receive Date: 20240604
  Receipt Date: 20240604
  Transmission Date: 20240715
  Serious: No
  Sender: FDA-Public Use
  Company Number: JP-NShinyaku-EVA202305201ZZLILLY

PATIENT
  Age: 75 Year
  Sex: Female

DRUGS (12)
  1. TADALAFIL [Suspect]
     Active Substance: TADALAFIL
     Indication: Pulmonary arterial hypertension
     Dosage: 20 MG, UNKNOWN
     Route: 048
  2. UPTRAVI [Suspect]
     Active Substance: SELEXIPAG
     Indication: Pulmonary arterial hypertension
     Dosage: UNK UNK, UNKNOWN
     Route: 048
     Dates: start: 20230510
  3. UPTRAVI [Suspect]
     Active Substance: SELEXIPAG
     Dosage: INCREASE BY 1.2 MG AFTER BREAKFAST AND 1.2 MG AFTER DINNER
     Route: 048
     Dates: start: 2023
  4. UPTRAVI [Suspect]
     Active Substance: SELEXIPAG
     Dosage: AFTER BREAKFAST, AFTER DINNER
     Route: 048
     Dates: start: 2023
  5. OPSUMIT [Concomitant]
     Active Substance: MACITENTAN
     Indication: Pulmonary arterial hypertension
     Dosage: UNK UNK, UNKNOWN
     Route: 048
  6. MIYA-BM [Concomitant]
     Active Substance: CLOSTRIDIUM BUTYRICUM SPORES STRAIN M-55
     Indication: Product used for unknown indication
     Dosage: UNK UNK, UNKNOWN
     Route: 048
  7. FUROSEMIDE [Concomitant]
     Active Substance: FUROSEMIDE
     Indication: Product used for unknown indication
     Dosage: UNK UNK, UNKNOWN
     Route: 048
  8. FUROSEMIDE [Concomitant]
     Active Substance: FUROSEMIDE
     Dosage: UNKNOWN
  9. SPIRONOLACTONE [Concomitant]
     Active Substance: SPIRONOLACTONE
     Indication: Product used for unknown indication
     Dosage: UNK UNK, UNKNOWN
     Route: 048
  10. SPIRONOLACTONE [Concomitant]
     Active Substance: SPIRONOLACTONE
     Dosage: UNKNOWN
  11. TOLVAPTAN [Concomitant]
     Active Substance: TOLVAPTAN
     Indication: Product used for unknown indication
     Dosage: UNK UNK, UNKNOWN
     Route: 048
  12. TOLVAPTAN [Concomitant]
     Active Substance: TOLVAPTAN
     Dosage: UNKNOWN

REACTIONS (16)
  - Back disorder [Not Recovered/Not Resolved]
  - Faeces soft [Not Recovered/Not Resolved]
  - Arthralgia [Not Recovered/Not Resolved]
  - Oropharyngeal pain [Recovered/Resolved]
  - Nasopharyngitis [Recovered/Resolved]
  - Nasopharyngitis [Recovered/Resolved]
  - Photopsia [Not Recovered/Not Resolved]
  - Frequent bowel movements [Not Recovered/Not Resolved]
  - Haemorrhoids [Not Recovered/Not Resolved]
  - Hot flush [Recovered/Resolved]
  - Malaise [Recovered/Resolved]
  - Epistaxis [Not Recovered/Not Resolved]
  - Dizziness postural [Recovering/Resolving]
  - Myalgia [Recovered/Resolved]
  - Rhinorrhoea [Recovered/Resolved]
  - Headache [Not Recovered/Not Resolved]

NARRATIVE: CASE EVENT DATE: 20230510
